FAERS Safety Report 14628498 (Version 2)
Quarter: 2018Q1

REPORT INFORMATION
  Report Type: Spontaneous
  Country: FR (occurrence: FR)
  Receive Date: 20180313
  Receipt Date: 20180320
  Transmission Date: 20180509
  Serious: Yes (Hospitalization)
  Sender: FDA-Public Use
  Company Number: FR-ROCHE-2088114

PATIENT
  Age: 44 Year
  Sex: Female

DRUGS (4)
  1. QIZENDAY [Concomitant]
     Active Substance: BIOTIN
     Dosage: 3 CP PAR JOURS
     Route: 048
     Dates: start: 20160919, end: 20171031
  2. MABTHERA [Suspect]
     Active Substance: RITUXIMAB
     Dosage: REDUCED DOSE
     Route: 042
  3. MABTHERA [Suspect]
     Active Substance: RITUXIMAB
     Indication: MULTIPLE SCLEROSIS
     Route: 042
     Dates: start: 20150515
  4. FAMPYRA [Suspect]
     Active Substance: DALFAMPRIDINE
     Indication: MULTIPLE SCLEROSIS
     Route: 048
     Dates: start: 20130502

REACTIONS (2)
  - Arterial stenosis [Not Recovered/Not Resolved]
  - Arterial disorder [Not Recovered/Not Resolved]

NARRATIVE: CASE EVENT DATE: 20171213
